FAERS Safety Report 16111179 (Version 1)
Quarter: 2019Q2

REPORT INFORMATION
  Report Type: Spontaneous
  Country: US (occurrence: US)
  Receive Date: 20190322
  Receipt Date: 20190322
  Transmission Date: 20190711
  Serious: No
  Sender: FDA-Public Use
  Company Number: None

PATIENT
  Age: 62 Year
  Sex: Female

DRUGS (11)
  1. LEVOTHYROXINE. [Concomitant]
     Active Substance: LEVOTHYROXINE
  2. LITHIUM. [Concomitant]
     Active Substance: LITHIUM
  3. ENBREL [Concomitant]
     Active Substance: ETANERCEPT
  4. BACLOFEN. [Concomitant]
     Active Substance: BACLOFEN
  5. LYRICA [Concomitant]
     Active Substance: PREGABALIN
  6. ZOLOFT [Concomitant]
     Active Substance: SERTRALINE HYDROCHLORIDE
  7. LOSARTAN. [Concomitant]
     Active Substance: LOSARTAN
  8. OLANZAPINE. [Concomitant]
     Active Substance: OLANZAPINE
  9. PRAVASTATIN. [Concomitant]
     Active Substance: PRAVASTATIN
  10. ASPIRIN. [Concomitant]
     Active Substance: ASPIRIN
  11. RAYALDEE [Suspect]
     Active Substance: CALCIFEDIOL
     Indication: HYPERPARATHYROIDISM SECONDARY
     Route: 048
     Dates: start: 20190117, end: 20190322

REACTIONS (1)
  - Dysgeusia [None]

NARRATIVE: CASE EVENT DATE: 20190322
